FAERS Safety Report 5197341-X (Version None)
Quarter: 2006Q4

REPORT INFORMATION
  Report Type: 
  Country: None (occurrence: None)
  Receive Date: 20061228
  Receipt Date: 20061218
  Transmission Date: 20070319
  Serious: No
  Sender: FDA-Public Use
  Company Number: E2090-00144-CLI-JP

PATIENT
  Age: 77 Year
  Sex: Male

DRUGS (8)
  1. ZONEGRAN [Suspect]
     Indication: PARKINSON'S DISEASE
     Dosage: 50 MG, 1 IN 1 D, ORAL; SEE IMAGE
     Route: 048
     Dates: start: 20060122, end: 20060217
  2. ZONEGRAN [Suspect]
     Indication: PARKINSON'S DISEASE
     Dosage: 50 MG, 1 IN 1 D, ORAL; SEE IMAGE
     Route: 048
     Dates: start: 20060218
  3. NEODOPASOL (MADOPAR) [Concomitant]
  4. CABERGOLINE [Concomitant]
  5. ALLOPURINOL [Concomitant]
  6. PURSENNID (SENNA LEAF) [Concomitant]
  7. TEGRETOL [Concomitant]
  8. SELEGILINE HYDROCHLORIDE [Concomitant]

REACTIONS (8)
  - ANAEMIA [None]
  - FALL [None]
  - GASTRIC ULCER [None]
  - HAEMORRHAGE [None]
  - HELICOBACTER INFECTION [None]
  - LACERATION [None]
  - MALNUTRITION [None]
  - STOMACH DISCOMFORT [None]
